FAERS Safety Report 7368641 (Version 9)
Quarter: 2012Q4

REPORT INFORMATION
  Report Type: 
  Country: US (occurrence: US)
  Receive Date: 20100428
  Receipt Date: 20121025
  Transmission Date: 20130627
  Serious: Yes (Hospitalization, Other)
  Sender: FDA-Public Use
  Company Number: PHHY2010US26135

PATIENT
  Age: 51 Year
  Sex: Male
  Weight: 100 kg

DRUGS (10)
  1. GLEEVEC [Suspect]
     Indication: CHRONIC MYELOID LEUKAEMIA
     Dosage: 400 mg, QD
     Route: 048
     Dates: start: 20090901
  2. GLEEVEC [Suspect]
     Dosage: 400 mg, UNK
     Route: 048
     Dates: start: 20090910
  3. GLEEVEC [Suspect]
     Dosage: 400 mg, UNK
     Route: 048
     Dates: start: 20110525
  4. GLEEVEC [Suspect]
     Dosage: 400 mg, QD
     Route: 048
  5. WARFARIN [Concomitant]
     Dosage: 5 mg, UNK
     Route: 048
  6. ATENOLOL [Concomitant]
     Dosage: 25 mg, QHS
     Route: 048
  7. UROXATRAL [Concomitant]
     Dosage: 10 mg, UNK
     Route: 048
  8. FEXOFENADINE [Concomitant]
     Dosage: 180 mg, UNK
     Route: 048
  9. NOVOLOG [Concomitant]
     Route: 058
  10. COUMADIN ^BOOTS^ [Concomitant]

REACTIONS (20)
  - Diabetes mellitus inadequate control [Recovered/Resolved]
  - Asthma [Recovered/Resolved]
  - Rhinitis allergic [Recovered/Resolved]
  - Sinus congestion [Unknown]
  - Nasal congestion [Unknown]
  - Dyspnoea [Recovered/Resolved]
  - Chronic myeloid leukaemia [Unknown]
  - Malignant neoplasm progression [Unknown]
  - Blast crisis in myelogenous leukaemia [Unknown]
  - Decreased appetite [Unknown]
  - Thrombosis [Unknown]
  - Weight decreased [Unknown]
  - Wheezing [Unknown]
  - Pyrexia [Unknown]
  - Chills [Unknown]
  - Vein disorder [Unknown]
  - Infection [Unknown]
  - Back pain [Unknown]
  - Oedema peripheral [Unknown]
  - Malaise [Unknown]
